FAERS Safety Report 8067700-6 (Version None)
Quarter: 2012Q1

REPORT INFORMATION
  Report Type: 
  Country: None (occurrence: None)
  Receive Date: 20120124
  Receipt Date: 20120118
  Transmission Date: 20120608
  Serious: Yes (Hospitalization)
  Sender: FDA-Public Use
  Company Number: FR-ASTRAZENECA-2012SE03804

PATIENT
  Sex: Female

DRUGS (3)
  1. ARIMIDEX [Suspect]
     Indication: BREAST CANCER
     Route: 048
     Dates: start: 20050901, end: 20110601
  2. LEVOTHYROXINE SODIUM [Concomitant]
  3. NEBIVOLOL HCL [Suspect]
     Indication: HYPERTENSION
     Route: 048
     Dates: start: 20040101, end: 20110901

REACTIONS (1)
  - HEPATIC CIRRHOSIS [None]
